FAERS Safety Report 7553773-3 (Version None)
Quarter: 2011Q2

REPORT INFORMATION
  Report Type: 
  Country: None (occurrence: None)
  Receive Date: 20110617
  Receipt Date: 20110602
  Transmission Date: 20111010
  Serious: Yes (Death, Hospitalization)
  Sender: FDA-Public Use
  Company Number: JP-JNJFOC-20100902164

PATIENT
  Sex: Male
  Weight: 67 kg

DRUGS (8)
  1. MYSER [Concomitant]
     Indication: PUSTULAR PSORIASIS
     Dates: start: 20091222, end: 20100412
  2. MYSER [Concomitant]
     Dates: start: 20100427
  3. REMICADE [Suspect]
     Indication: PUSTULAR PSORIASIS
     Route: 042
     Dates: start: 20100413
  4. REMICADE [Suspect]
     Route: 042
     Dates: start: 20100329
  5. ISONIAZID [Concomitant]
     Indication: ANTIBIOTIC PROPHYLAXIS
     Route: 048
     Dates: start: 20100316, end: 20100622
  6. ETRETINATE [Concomitant]
     Indication: PUSTULAR PSORIASIS
     Route: 048
  7. REMICADE [Suspect]
     Route: 042
     Dates: start: 20100511
  8. RINDERON-DP [Concomitant]

REACTIONS (1)
  - COLON CANCER METASTATIC [None]
